FAERS Safety Report 7170667-6 (Version None)
Quarter: 2010Q4

REPORT INFORMATION
  Report Type: 
  Country: None (occurrence: None)
  Receive Date: 20101217
  Receipt Date: 20101209
  Transmission Date: 20110411
  Serious: Yes (Hospitalization, Other)
  Sender: FDA-Public Use
  Company Number: B0689586A

PATIENT
  Age: 16 Year
  Sex: Female

DRUGS (1)
  1. PROPAFENONE HCL [Suspect]
     Dosage: 6000MG PER DAY
     Route: 048

REACTIONS (9)
  - CARDIAC FAILURE [None]
  - CONDUCTION DISORDER [None]
  - DRUG TOXICITY [None]
  - GRAND MAL CONVULSION [None]
  - HAEMODYNAMIC INSTABILITY [None]
  - HYPOTENSION [None]
  - MYOCARDIAL DEPRESSION [None]
  - SUICIDE ATTEMPT [None]
  - VENTRICULAR ARRHYTHMIA [None]
